FAERS Safety Report 10081076 (Version 1)
Quarter: 2014Q2

REPORT INFORMATION
  Report Type: Spontaneous
  Country: JP (occurrence: None)
  Receive Date: 20140414
  Receipt Date: 20140414
  Transmission Date: 20141212
  Serious: Yes (Other)
  Sender: FDA-Public Use
  Company Number: 7279809

PATIENT
  Age: 76 Year
  Sex: Male

DRUGS (3)
  1. LEVOTHYROXINE (LEVOTHYROXINE) (LEVOTHYROXINE SODIUM) [Suspect]
     Indication: HYPOPHYSITIS
     Route: 048
  2. PREDNISOLONE [Suspect]
     Indication: HYPOPHYSITIS
     Route: 048
  3. HYDROCORTISONE (HYDROCORTISONE) (HYDROCORTISONE) [Suspect]
     Indication: HYPOPHYSITIS

REACTIONS (14)
  - Diabetes insipidus [None]
  - Diabetes mellitus [None]
  - Autoimmune pancreatitis [None]
  - Decreased appetite [None]
  - Malaise [None]
  - Abulia [None]
  - Depression [None]
  - Anaemia [None]
  - Eosinophilia [None]
  - Aspartate aminotransferase increased [None]
  - Blood alkaline phosphatase increased [None]
  - Hyponatraemia [None]
  - C-reactive protein increased [None]
  - Blood immunoglobulin G increased [None]
